FAERS Safety Report 9969900 (Version 1)
Quarter: 2014Q1

REPORT INFORMATION
  Report Type: Spontaneous
  Country: DE (occurrence: None)
  Receive Date: 20140304
  Receipt Date: 20140304
  Transmission Date: 20141002
  Serious: Yes (Congenital Anomaly, Other)
  Sender: FDA-Public Use
  Company Number: HRA-CDB20140027

PATIENT
  Sex: 0

DRUGS (3)
  1. ELLAONE [Suspect]
     Indication: EXPOSURE DURING PREGNANCY
     Route: 064
     Dates: start: 20110530, end: 20110530
  2. ENOXAPARIN SODIUM [Concomitant]
  3. MAGNESIUM HYDROXIDE [Concomitant]

REACTIONS (12)
  - Premature baby [None]
  - Hypoglycaemia neonatal [None]
  - Macroglossia [None]
  - Umbilical hernia [None]
  - Diastasis recti abdominis [None]
  - Large for dates baby [None]
  - Kidney enlargement [None]
  - Hypotonia neonatal [None]
  - Beckwith-Wiedemann syndrome [None]
  - Developmental delay [None]
  - Foetal exposure during pregnancy [None]
  - Maternal drugs affecting foetus [None]
